FAERS Safety Report 8033049-0 (Version None)
Quarter: 2012Q1

REPORT INFORMATION
  Report Type: 
  Country: None (occurrence: None)
  Receive Date: 20120110
  Receipt Date: 20120105
  Transmission Date: 20120608
  Serious: Yes (Other)
  Sender: FDA-Public Use
  Company Number: US-PFIZER INC-2012002085

PATIENT
  Sex: Female

DRUGS (3)
  1. NEURONTIN [Suspect]
     Indication: NEURALGIA
     Dosage: 800 MG, 4X/DAY
     Route: 048
  2. HYDROCODONE [Concomitant]
  3. XANAX [Concomitant]

REACTIONS (2)
  - NEUROPATHY PERIPHERAL [None]
  - FEELING ABNORMAL [None]
